FAERS Safety Report 19810566 (Version 1)
Quarter: 2021Q3

REPORT INFORMATION
  Report Type: Spontaneous
  Country: US (occurrence: US)
  Receive Date: 20210903
  Receipt Date: 20210903
  Transmission Date: 20211014
  Serious: No
  Sender: FDA-Public Use
  Company Number: None

PATIENT
  Age: 81 Year
  Sex: Male
  Weight: 78 kg

DRUGS (2)
  1. NAPROXEN (NAPROXEN 500MG TAB) [Suspect]
     Active Substance: NAPROXEN
     Route: 048
     Dates: start: 20210325, end: 20210421
  2. SULINDAC (SULINDAC 200MG TAB) [Suspect]
     Active Substance: SULINDAC
     Indication: PAIN
     Route: 048
     Dates: start: 20210526, end: 20210617

REACTIONS (6)
  - Nausea [None]
  - Acute kidney injury [None]
  - Confusional state [None]
  - Vomiting [None]
  - Renal tubular necrosis [None]
  - Nephritis [None]

NARRATIVE: CASE EVENT DATE: 20210618
